FAERS Safety Report 24095703 (Version 2)
Quarter: 2024Q3

REPORT INFORMATION
  Report Type: Spontaneous
  Country: NL (occurrence: NL)
  Receive Date: 20240716
  Receipt Date: 20240718
  Transmission Date: 20241016
  Serious: Yes (Hospitalization)
  Sender: AUROBINDO
  Company Number: NL-PFIZER INC-PV202400087938

PATIENT
  Age: 24 Year
  Sex: Female

DRUGS (3)
  1. CLARITHROMYCIN [Suspect]
     Active Substance: CLARITHROMYCIN
     Indication: Vulvitis
     Dosage: UNK
     Route: 065
  2. AZITHROMYCIN [Suspect]
     Active Substance: AZITHROMYCIN
     Indication: Vulvovaginal candidiasis
     Dosage: UNK
     Route: 065
  3. FLUPREDNIDENE ACETATE\MICONAZOLE NITRATE [Suspect]
     Active Substance: FLUPREDNIDENE ACETATE\MICONAZOLE NITRATE
     Indication: Vulvovaginal candidiasis
     Dosage: UNK
     Route: 065

REACTIONS (3)
  - Genital herpes [Recovered/Resolved]
  - C-reactive protein increased [Unknown]
  - Off label use [Unknown]
